FAERS Safety Report 25366246 (Version 1)
Quarter: 2025Q2

REPORT INFORMATION
  Report Type: Spontaneous
  Country: CN (occurrence: CN)
  Receive Date: 20250528
  Receipt Date: 20250528
  Transmission Date: 20250717
  Serious: Yes (Life-Threatening, Other)
  Sender: PHARMAXIS EUROPE LIMITED
  Company Number: CN-Pharmaxis-001239

PATIENT
  Age: 48 Year
  Sex: Male

DRUGS (1)
  1. MANNITOL [Suspect]
     Active Substance: MANNITOL
     Indication: Localised oedema
     Dosage: 50 G OF 20 PERCENT MANNITOL (INFUSION)
     Route: 041

REACTIONS (1)
  - Brain herniation [Recovering/Resolving]
